FAERS Safety Report 10765267 (Version 1)
Quarter: 2015Q1

REPORT INFORMATION
  Report Type: Spontaneous
  Country: US (occurrence: None)
  Receive Date: 20150204
  Receipt Date: 20150204
  Transmission Date: 20150721
  Serious: Yes (Other)
  Sender: FDA-Public Use
  Company Number: None

PATIENT
  Age: 60 Year
  Sex: Female
  Weight: 54.43 kg

DRUGS (2)
  1. HYDROMORPHONE ER [Suspect]
     Active Substance: HYDROMORPHONE HYDROCHLORIDE
     Indication: PANCREATITIS CHRONIC
     Dosage: ONE PILL DAILY QD ORAL
     Route: 048
     Dates: start: 20141212, end: 20150115
  2. HYDROMORPHONE ER [Suspect]
     Active Substance: HYDROMORPHONE HYDROCHLORIDE
     Indication: PAIN MANAGEMENT
     Dosage: ONE PILL DAILY QD ORAL
     Route: 048
     Dates: start: 20141212, end: 20150115

REACTIONS (5)
  - Product coating issue [None]
  - Toxicity to various agents [None]
  - Vomiting [None]
  - Product solubility abnormal [None]
  - Dizziness [None]

NARRATIVE: CASE EVENT DATE: 20150118
